FAERS Safety Report 8459867-2 (Version None)
Quarter: 2012Q2

REPORT INFORMATION
  Report Type: 
  Country: None (occurrence: None)
  Receive Date: 20120622
  Receipt Date: 20120618
  Transmission Date: 20120825
  Serious: Yes (Hospitalization)
  Sender: FDA-Public Use
  Company Number: PHHY2011DE23111

PATIENT
  Sex: Male
  Weight: 81 kg

DRUGS (9)
  1. METOPROLOL [Concomitant]
     Dosage: 50 MG,
     Route: 048
     Dates: start: 20110228
  2. KEPPRA [Concomitant]
     Dosage: 1000 MG,
     Route: 048
     Dates: start: 20110228
  3. ASPIRIN [Concomitant]
     Indication: CORONARY ARTERY DISEASE
     Dosage: 100 MG,
     Route: 048
     Dates: start: 20110228
  4. PANTOPRAZOLE [Concomitant]
     Indication: GASTRIC DISORDER
     Dosage: 40 MG,
     Route: 048
     Dates: start: 20101215
  5. FLUCONAZOLE [Concomitant]
     Dosage: 100 MG,
     Route: 048
     Dates: start: 20110228
  6. LISIBETA [Concomitant]
     Indication: HYPERTENSION
     Dosage: 10 MG,
     Route: 048
     Dates: start: 20110228
  7. AFINITOR [Suspect]
     Indication: RENAL CELL CARCINOMA
     Dosage: 10 MG, DAILY
     Route: 048
     Dates: start: 20110217, end: 20110228
  8. SIMVASTATIN [Concomitant]
     Indication: HYPERLIPIDAEMIA
     Dosage: 40 MG,
     Route: 048
     Dates: start: 20110228
  9. DEXAMETHASONE [Concomitant]
     Indication: NEOPLASM MALIGNANT
     Dosage: 8 MG,
     Route: 048
     Dates: start: 20101215, end: 20110324

REACTIONS (4)
  - DUODENAL ULCER [None]
  - GASTROINTESTINAL ULCER [None]
  - ANAEMIA [None]
  - GASTRIC ULCER [None]
